FAERS Safety Report 20248896 (Version 1)
Quarter: 2021Q4

REPORT INFORMATION
  Report Type: Spontaneous
  Country: DE (occurrence: DE)
  Receive Date: 20211229
  Receipt Date: 20211229
  Transmission Date: 20220303
  Serious: Yes (Other)
  Sender: FDA-Public Use
  Company Number: DE-EMBRYOTOX-202109244

PATIENT
  Age: 1 Day
  Sex: Female

DRUGS (4)
  1. PREDNISONE [Suspect]
     Active Substance: PREDNISONE
     Indication: Myalgia
     Dosage: 10 [MG / D (UP TO 7.5)] , ADDITIONAL INFO : 33.1. - 37.4. GESTATIONAL WEEK
     Route: 064
     Dates: end: 20190803
  2. ACETAMINOPHEN [Concomitant]
     Active Substance: ACETAMINOPHEN
     Indication: Headache
     Dosage: 500 [MG / D (AS REQUIRED)] , ADDITIONAL INFO : TRIMESTER: UNKNOWN TRIMESTER , UNIT DOSE : 500 MG
     Route: 064
  3. ACETAMINOPHEN [Concomitant]
     Active Substance: ACETAMINOPHEN
     Indication: Myalgia
     Dosage: 500 [MG / D (IF NECESSARY)] , UNIT DOSE : 500 MG ,ADDITIONAL INFO : TRIMESTER: UNKNOWN TRIMESTER
     Route: 064
  4. PROGESTERONE [Concomitant]
     Active Substance: PROGESTERONE
     Indication: Cervical incompetence
     Dosage: 600 MILLIGRAM DAILY; 600 [MG/D (3X200 MG) ] , ADDITIONAL INFO : 29.3. - GESTATIONAL WEEK
     Route: 064

REACTIONS (4)
  - Small for dates baby [Recovered/Resolved]
  - Microcephaly [Unknown]
  - Hypoglycaemia neonatal [Recovered/Resolved]
  - Foetal exposure during pregnancy [Unknown]

NARRATIVE: CASE EVENT DATE: 20181113
